FAERS Safety Report 6031501-0 (Version None)
Quarter: 2009Q1

REPORT INFORMATION
  Report Type: 
  Country: None (occurrence: None)
  Receive Date: 20090108
  Receipt Date: 20081229
  Transmission Date: 20090719
  Serious: Yes (Hospitalization, Other)
  Sender: FDA-Public Use
  Company Number: PHHO2007MX06782

PATIENT
  Sex: Female

DRUGS (1)
  1. DIOVAN HCT [Suspect]
     Indication: HYPERTENSION
     Dosage: 1 TABLET (160/25 MG) PER DAY
     Route: 048
     Dates: start: 20051101

REACTIONS (9)
  - BLOOD CHOLESTEROL INCREASED [None]
  - BLOOD PRESSURE FLUCTUATION [None]
  - BLOOD TRIGLYCERIDES INCREASED [None]
  - CARDIAC PACEMAKER INSERTION [None]
  - CHEST PAIN [None]
  - CORONARY ARTERY OCCLUSION [None]
  - PULSE PRESSURE ABNORMAL [None]
  - RESPIRATORY DISORDER [None]
  - SURGERY [None]
